FAERS Safety Report 19389102 (Version 1)
Quarter: 2021Q2

REPORT INFORMATION
  Report Type: Spontaneous
  Country: AU (occurrence: AU)
  Receive Date: 20210607
  Receipt Date: 20210607
  Transmission Date: 20210717
  Serious: Yes (Death, Other)
  Sender: FDA-Public Use
  Company Number: AU-ASTRAZENECA-2021A503659

PATIENT
  Age: 79 Year
  Sex: Male

DRUGS (5)
  1. CRESTOR [Suspect]
     Active Substance: ROSUVASTATIN CALCIUM
     Indication: HYPERCHOLESTEROLAEMIA
     Dosage: 40.0MG UNKNOWN
     Route: 048
  2. SITAGLIPTIN/METFORMIN [Concomitant]
     Active Substance: METFORMIN\SITAGLIPTIN
     Dosage: 50 MG/1000 MG
  3. METOPROLOL. [Concomitant]
     Active Substance: METOPROLOL
  4. PERINDOPRIL/AMLODIPINE [Concomitant]
     Active Substance: AMLODIPINE\PERINDOPRIL
     Dosage: 10 MG/10 MG,
  5. EZETEMIBE [Interacting]
     Active Substance: EZETIMIBE
     Dosage: 10.0MG UNKNOWN
     Route: 065

REACTIONS (5)
  - Hepatic function abnormal [Fatal]
  - Drug interaction [Unknown]
  - Rhabdomyolysis [Fatal]
  - Haematuria [Unknown]
  - Death [Fatal]
